FAERS Safety Report 20128991 (Version 14)
Quarter: 2024Q1

REPORT INFORMATION
  Report Type: Spontaneous
  Country: US (occurrence: US)
  Receive Date: 20211130
  Receipt Date: 20240226
  Transmission Date: 20240409
  Serious: Yes (Hospitalization)
  Sender: FDA-Public Use
  Company Number: US-SA-SAC20211125000278

PATIENT
  Age: 28 Year
  Sex: Male
  Weight: 86.168 kg

DRUGS (5)
  1. CEREZYME [Suspect]
     Active Substance: IMIGLUCERASE
     Indication: Gaucher^s disease
     Dosage: 5600 IU, Q3W
     Route: 042
     Dates: start: 20151229
  2. CEREZYME [Suspect]
     Active Substance: IMIGLUCERASE
     Dosage: 5600 IU, QOW
     Route: 042
     Dates: start: 20161025
  3. CEREZYME [Suspect]
     Active Substance: IMIGLUCERASE
     Dosage: 5600 IU, QOW
     Route: 042
     Dates: start: 20211118
  4. CEREZYME [Suspect]
     Active Substance: IMIGLUCERASE
     Dosage: 4400 U, QOW
     Route: 042
     Dates: start: 201610
  5. CEREZYME [Suspect]
     Active Substance: IMIGLUCERASE
     Dosage: 4400 U, QOW
     Route: 042
     Dates: start: 202111

REACTIONS (14)
  - Limb injury [Unknown]
  - Hyperhidrosis [Unknown]
  - COVID-19 [Unknown]
  - Memory impairment [Unknown]
  - Weight decreased [Unknown]
  - Musculoskeletal stiffness [Unknown]
  - Anger [Unknown]
  - Anxiety [Unknown]
  - Insomnia [Unknown]
  - Amnesia [Unknown]
  - Dry mouth [Unknown]
  - Weight increased [Unknown]
  - Dizziness [Unknown]
  - Fatigue [Unknown]

NARRATIVE: CASE EVENT DATE: 20200101
